FAERS Safety Report 26045887 (Version 1)
Quarter: 2025Q4

REPORT INFORMATION
  Report Type: Spontaneous
  Country: AU (occurrence: AU)
  Receive Date: 20251114
  Receipt Date: 20251114
  Transmission Date: 20260118
  Serious: Yes (Other)
  Sender: RANBAXY
  Company Number: AU-SUN PHARMACEUTICAL INDUSTRIES LTD-2025R1-536156

PATIENT
  Sex: Female

DRUGS (9)
  1. ARIPIPRAZOLE [Suspect]
     Active Substance: ARIPIPRAZOLE
     Indication: Product used for unknown indication
     Dosage: 400 MILLIGRAM
     Route: 065
  2. ARIPIPRAZOLE [Suspect]
     Active Substance: ARIPIPRAZOLE
     Dosage: 2.5 MILLIGRAM
     Route: 065
     Dates: start: 2021
  3. ARIPIPRAZOLE [Suspect]
     Active Substance: ARIPIPRAZOLE
     Dosage: 5 MILLIGRAM
     Route: 065
     Dates: start: 2021
  4. MIRTAZAPINE [Suspect]
     Active Substance: MIRTAZAPINE
     Indication: Product used for unknown indication
     Dosage: 45 MILLIGRAM
     Route: 065
  5. MIRTAZAPINE [Suspect]
     Active Substance: MIRTAZAPINE
     Dosage: 60 MILLIGRAM
     Route: 065
  6. PALIPERIDONE [Suspect]
     Active Substance: PALIPERIDONE
     Indication: Product used for unknown indication
     Dosage: 200 MILLIGRAM
     Route: 065
     Dates: start: 2021
  7. PALIPERIDONE [Suspect]
     Active Substance: PALIPERIDONE
     Dosage: 300 MILLIGRAM
     Route: 065
     Dates: start: 2023
  8. PALIPERIDONE [Suspect]
     Active Substance: PALIPERIDONE
     Dosage: 200 MILLIGRAM
     Route: 065
     Dates: start: 2024, end: 20250509
  9. QUETIAPINE [Suspect]
     Active Substance: QUETIAPINE
     Indication: Product used for unknown indication
     Dosage: 800 MILLIGRAM NIGHT
     Route: 065

REACTIONS (4)
  - Depressive symptom [Unknown]
  - Extrapyramidal disorder [Unknown]
  - Parkinson^s disease [Unknown]
  - Schizoaffective disorder [Unknown]

NARRATIVE: CASE EVENT DATE: 20210101
